FAERS Safety Report 8993640 (Version 1)
Quarter: 2013Q1

REPORT INFORMATION
  Report Type: Spontaneous
  Country: US (occurrence: US)
  Receive Date: 20130102
  Receipt Date: 20130102
  Transmission Date: 20140127
  Serious: No
  Sender: FDA-Public Use
  Company Number: US-AMGEN-USASP2012084187

PATIENT
  Age: 50 Year
  Sex: Male

DRUGS (1)
  1. ENBREL [Suspect]
     Indication: PSORIASIS
     Dosage: 50 MG, UNK
     Dates: start: 20120901, end: 20121224

REACTIONS (3)
  - Injection site pain [Recovered/Resolved]
  - Injection site rash [Not Recovered/Not Resolved]
  - Psoriasis [Not Recovered/Not Resolved]
